FAERS Safety Report 22089782 (Version 1)
Quarter: 2023Q1

REPORT INFORMATION
  Report Type: Spontaneous
  Country: FR (occurrence: FR)
  Receive Date: 20230313
  Receipt Date: 20230313
  Transmission Date: 20230417
  Serious: Yes (Life-Threatening, Hospitalization)
  Sender: FDA-Public Use
  Company Number: None

PATIENT

DRUGS (2)
  1. SUBUTEX [Suspect]
     Active Substance: BUPRENORPHINE HYDROCHLORIDE
     Indication: Product used for unknown indication
     Dosage: 8 TO 16 MILLIGRAMS
     Route: 042
  2. SUBUTEX [Suspect]
     Active Substance: BUPRENORPHINE HYDROCHLORIDE
     Dosage: 16 MILLIGRAM, QD
     Route: 060

REACTIONS (4)
  - Off label use [Not Recovered/Not Resolved]
  - Abscess [Recovering/Resolving]
  - Drug withdrawal syndrome [Recovered/Resolved]
  - Intentional product misuse [Recovering/Resolving]
